FAERS Safety Report 24219467 (Version 1)
Quarter: 2024Q3

REPORT INFORMATION
  Report Type: Spontaneous
  Country: CA (occurrence: CA)
  Receive Date: 20240816
  Receipt Date: 20240816
  Transmission Date: 20241016
  Serious: Yes (Death, Other)
  Sender: GILEAD
  Company Number: CA-GILEAD-2024-0684414

PATIENT
  Sex: Male

DRUGS (1)
  1. YESCARTA [Suspect]
     Active Substance: AXICABTAGENE CILOLEUCEL
     Indication: Diffuse large B-cell lymphoma
     Dosage: UNK
     Route: 042
     Dates: start: 20240716, end: 20240716

REACTIONS (2)
  - Brain injury [Fatal]
  - Immune effector cell-associated neurotoxicity syndrome [Fatal]
